FAERS Safety Report 24217737 (Version 1)
Quarter: 2024Q3

REPORT INFORMATION
  Report Type: Spontaneous
  Country: CN (occurrence: CN)
  Receive Date: 20240816
  Receipt Date: 20240816
  Transmission Date: 20241017
  Serious: Yes (Hospitalization, Other)
  Sender: BAYER
  Company Number: CN-BAYER-2024A118085

PATIENT
  Age: 40 Year
  Sex: Female
  Weight: 62 kg

DRUGS (1)
  1. MIRENA [Suspect]
     Active Substance: LEVONORGESTREL
     Indication: Adenomyosis
     Dosage: 20?G/DAY
     Route: 015
     Dates: start: 20230101, end: 20240801

REACTIONS (10)
  - Genital haemorrhage [Recovering/Resolving]
  - Dizziness [Recovered/Resolved]
  - Central hypothyroidism [None]
  - Device expulsion [Recovered/Resolved]
  - Respiratory rate increased [None]
  - Blood pressure systolic increased [None]
  - Uterine enlargement [None]
  - Uterine scar [None]
  - Off label use of device [None]
  - Device use issue [None]

NARRATIVE: CASE EVENT DATE: 20230101
